FAERS Safety Report 15809381 (Version 4)
Quarter: 2019Q1

REPORT INFORMATION
  Report Type: Report from Study
  Country: CA (occurrence: CA)
  Receive Date: 20190110
  Receipt Date: 20190328
  Transmission Date: 20190417
  Serious: Yes (Other)
  Sender: FDA-Public Use
  Company Number: CA-BRISTOL-MYERS SQUIBB COMPANY-BMS-2018-058147

PATIENT
  Age: 77 Year
  Sex: Female

DRUGS (8)
  1. HCT [Concomitant]
     Active Substance: HYDROCHLOROTHIAZIDE
     Indication: HYPERTENSION
     Dosage: 125 MG, UNK
     Route: 048
  2. NORVASC [Concomitant]
     Active Substance: AMLODIPINE BESYLATE
     Indication: HYPERTENSION
     Dosage: 2.5 MG, UNK
     Route: 048
  3. SALAZOPYRIN [Concomitant]
     Active Substance: SULFASALAZINE
     Indication: POLYARTHRITIS
     Dosage: 1000 MG, BID
     Route: 048
  4. ALVACE [Concomitant]
     Indication: HYPERTENSION
     Dosage: 5 MG, UNK
     Route: 048
  5. ABATACEPT [Suspect]
     Active Substance: ABATACEPT
     Indication: RHEUMATOID ARTHRITIS
     Dosage: 750 MG, Q4WK
     Route: 042
     Dates: start: 20180620
  6. ABATACEPT [Suspect]
     Active Substance: ABATACEPT
     Indication: ARTHRITIS
     Route: 065
  7. PREDNISOLONE. [Concomitant]
     Active Substance: PREDNISOLONE
     Indication: POLYARTHRITIS
     Dosage: 5 MG, UNK
     Route: 048
  8. ARAVA [Concomitant]
     Active Substance: LEFLUNOMIDE
     Indication: POLYARTHRITIS
     Dosage: 20 MG, UNK
     Route: 048

REACTIONS (4)
  - Hot flush [Recovered/Resolved]
  - Arthralgia [Not Recovered/Not Resolved]
  - Fibromyalgia [Not Recovered/Not Resolved]
  - Pain [Not Recovered/Not Resolved]

NARRATIVE: CASE EVENT DATE: 20180620
